FAERS Safety Report 23679600 (Version 1)
Quarter: 2024Q1

REPORT INFORMATION
  Report Type: Spontaneous
  Country: US (occurrence: US)
  Receive Date: 20240327
  Receipt Date: 20240327
  Transmission Date: 20240409
  Serious: Yes (Other)
  Sender: FDA-Public Use
  Company Number: US-AMGEN-USASP2024059719

PATIENT
  Age: 66 Year
  Sex: Male

DRUGS (2)
  1. ADALIMUMAB [Suspect]
     Active Substance: ADALIMUMAB\ISOPROPYL ALCOHOL
     Indication: Vogt-Koyanagi-Harada disease
     Dosage: UNK
     Route: 065
  2. PREDNISONE [Concomitant]
     Active Substance: PREDNISONE
     Indication: Vogt-Koyanagi-Harada disease
     Dosage: UNK
     Route: 065

REACTIONS (10)
  - Colitis [Unknown]
  - Terminal ileitis [Unknown]
  - Haematochezia [Recovered/Resolved]
  - Gout [Unknown]
  - Faecal calprotectin increased [Unknown]
  - Henoch-Schonlein purpura [Recovered/Resolved]
  - Enteritis [Unknown]
  - Leukocytosis [Unknown]
  - Anaemia [Unknown]
  - Off label use [Unknown]
